FAERS Safety Report 4611755-5 (Version None)
Quarter: 2005Q2

REPORT INFORMATION
  Report Type: 
  Country: None (occurrence: None)
  Receive Date: 20050308
  Receipt Date: 20041208
  Transmission Date: 20051028
  Serious: Yes (Other)
  Sender: FDA-Public Use
  Company Number: 2004UW25098

PATIENT
  Sex: Female

DRUGS (1)
  1. CRESTOR [Suspect]
     Dosage: 5 MG QD PO
     Route: 048

REACTIONS (1)
  - ALOPECIA [None]
